FAERS Safety Report 22647513 (Version 1)
Quarter: 2023Q2

REPORT INFORMATION
  Report Type: Other
  Country: US (occurrence: US)
  Receive Date: 20230628
  Receipt Date: 20230628
  Transmission Date: 20230721
  Serious: Yes (Hospitalization)
  Sender: FDA-Public Use
  Company Number: US-ALVOGEN-2023091779

PATIENT
  Age: 74 Year
  Sex: Female

DRUGS (2)
  1. FLECAINIDE [Suspect]
     Active Substance: FLECAINIDE
     Indication: Atrial fibrillation
     Dosage: FOR 20 YEARS
  2. METOPROLOL SUCCINATE [Concomitant]
     Active Substance: METOPROLOL SUCCINATE
     Indication: Atrial fibrillation
     Dosage: FOR 20 YEARS

REACTIONS (12)
  - Toxicity to various agents [Unknown]
  - Tachycardia [Recovered/Resolved]
  - Defect conduction intraventricular [Unknown]
  - Atrioventricular block first degree [Unknown]
  - Bundle branch block left [Unknown]
  - Ventricular tachycardia [Recovered/Resolved]
  - Palpitations [Unknown]
  - Presyncope [Unknown]
  - Electrocardiogram QRS complex prolonged [Recovered/Resolved]
  - Electrocardiogram QT prolonged [Unknown]
  - Electrocardiogram PR prolongation [Recovered/Resolved]
  - Off label use [Unknown]
